FAERS Safety Report 12649432 (Version 1)
Quarter: 2016Q3

REPORT INFORMATION
  Report Type: Spontaneous
  Country: BR (occurrence: BR)
  Receive Date: 20160812
  Receipt Date: 20160812
  Transmission Date: 20161109
  Serious: Yes (Other)
  Sender: FDA-Public Use
  Company Number: BR-ELI_LILLY_AND_COMPANY-BR201608002147

PATIENT
  Age: 45 Year
  Sex: Female

DRUGS (3)
  1. BEVACIZUMAB [Concomitant]
     Active Substance: BEVACIZUMAB
     Indication: SEROUS CYSTADENOCARCINOMA OVARY
     Dosage: UNK, UNKNOWN
     Route: 065
     Dates: end: 201604
  2. CARBOPLATIN. [Concomitant]
     Active Substance: CARBOPLATIN
     Indication: SEROUS CYSTADENOCARCINOMA OVARY
     Dosage: UNK, UNKNOWN
     Route: 065
  3. GEMZAR [Suspect]
     Active Substance: GEMCITABINE HYDROCHLORIDE
     Indication: SEROUS CYSTADENOCARCINOMA OVARY
     Dosage: UNK, UNKNOWN
     Route: 065
     Dates: start: 201509

REACTIONS (2)
  - Incisional hernia [Unknown]
  - Off label use [Recovered/Resolved]

NARRATIVE: CASE EVENT DATE: 201509
